FAERS Safety Report 21886030 (Version 2)
Quarter: 2023Q1

REPORT INFORMATION
  Report Type: Spontaneous
  Country: US (occurrence: US)
  Receive Date: 20230119
  Receipt Date: 20230207
  Transmission Date: 20230417
  Serious: Yes (Life-Threatening, Hospitalization, Other)
  Sender: FDA-Public Use
  Company Number: US-BRISTOL-MYERS SQUIBB COMPANY-2023-008489

PATIENT
  Age: 75 Year
  Sex: Male
  Weight: 99.79 kg

DRUGS (1)
  1. REVLIMID [Suspect]
     Active Substance: LENALIDOMIDE
     Indication: Plasma cell myeloma
     Dosage: 21 DAY ON 7 DAY OFF. ( 3W, 1W OFF)
     Route: 048
     Dates: start: 20210401, end: 20230102

REACTIONS (1)
  - COVID-19 pneumonia [Not Recovered/Not Resolved]
